FAERS Safety Report 9836429 (Version 3)
Quarter: 2015Q3

REPORT INFORMATION
  Report Type: Report from Study
  Country: US (occurrence: US)
  Receive Date: 20140123
  Receipt Date: 20150731
  Transmission Date: 20151125
  Serious: Yes (Hospitalization)
  Sender: FDA-Public Use
  Company Number: US-BIOGENIDEC-2014BI004657

PATIENT
  Age: 38 Year
  Sex: Female

DRUGS (11)
  1. TECFIDERA [Suspect]
     Active Substance: DIMETHYL FUMARATE
     Indication: PRODUCT USED FOR UNKNOWN INDICATION
     Route: 048
  2. TOPAMAX [Concomitant]
     Active Substance: TOPIRAMATE
  3. ZANTAC [Concomitant]
     Active Substance: RANITIDINE HYDROCHLORIDE
  4. HYDROCODONE [Concomitant]
     Active Substance: HYDROCODONE
  5. TECFIDERA [Suspect]
     Active Substance: DIMETHYL FUMARATE
     Indication: PRODUCT USED FOR UNKNOWN INDICATION
     Route: 048
     Dates: start: 20131112
  6. TECFIDERA [Suspect]
     Active Substance: DIMETHYL FUMARATE
     Indication: PRODUCT USED FOR UNKNOWN INDICATION
     Route: 048
     Dates: end: 20131202
  7. LISINOPRIL. [Concomitant]
     Active Substance: LISINOPRIL
  8. TECFIDERA [Suspect]
     Active Substance: DIMETHYL FUMARATE
     Indication: PRODUCT USED FOR UNKNOWN INDICATION
     Route: 048
  9. LOPRESSOR [Concomitant]
     Active Substance: METOPROLOL TARTRATE
  10. VALIUM [Concomitant]
     Active Substance: DIAZEPAM
  11. FENTANYL. [Concomitant]
     Active Substance: FENTANYL

REACTIONS (11)
  - Respiratory failure [Recovered/Resolved]
  - Procedural intestinal perforation [Recovered/Resolved]
  - Hysterectomy [Recovered/Resolved]
  - Gastrointestinal disorder postoperative [Recovered/Resolved]
  - Pulmonary embolism [Not Recovered/Not Resolved]
  - Sepsis [Recovered/Resolved]
  - Abdominal abscess [Recovered/Resolved]
  - Peritonitis [Recovered/Resolved]
  - Intestinal obstruction [Recovered/Resolved]
  - Fluid overload [Recovered/Resolved]
  - Pneumonia aspiration [Recovered/Resolved]

NARRATIVE: CASE EVENT DATE: 20131202
